FAERS Safety Report 9859483 (Version 12)
Quarter: 2015Q3

REPORT INFORMATION
  Report Type: Report from Study
  Country: US (occurrence: US)
  Receive Date: 20140131
  Receipt Date: 20150730
  Transmission Date: 20151125
  Serious: Yes (Hospitalization, Other)
  Sender: FDA-Public Use
  Company Number: US-ALEXION PHARMACEUTICALS INC.-A201400206

PATIENT

DRUGS (15)
  1. LOVENOX [Concomitant]
     Active Substance: ENOXAPARIN SODIUM
     Indication: ANTICOAGULANT THERAPY
     Dosage: UNK, PRN
     Route: 065
     Dates: start: 20080108
  2. LOPRESSOR [Concomitant]
     Active Substance: METOPROLOL TARTRATE
     Indication: APLASTIC ANAEMIA
     Dosage: 12.5 MG, QD
     Route: 048
  3. IMITREX [Concomitant]
     Active Substance: SUMATRIPTAN\SUMATRIPTAN SUCCINATE
     Indication: MIGRAINE
     Dosage: 0.5 ML, Q2H PRN
     Route: 065
  4. NEORAL [Concomitant]
     Active Substance: CYCLOSPORINE
     Indication: APLASTIC ANAEMIA
     Dosage: 100 MG, QD
     Route: 048
     Dates: start: 20080108
  5. FOLIC ACID. [Concomitant]
     Active Substance: FOLIC ACID
     Indication: APLASTIC ANAEMIA
     Dosage: 1 MG, QD
     Route: 048
  6. DEFERASIROX [Concomitant]
     Active Substance: DEFERASIROX
     Indication: PRODUCT USED FOR UNKNOWN INDICATION
     Dosage: 1000 MG, QD
     Route: 048
  7. CHOLECALCIFEROL [Concomitant]
     Active Substance: CHOLECALCIFEROL
     Dosage: 5000 UNITS
     Route: 048
  8. ZOFRAN [Concomitant]
     Active Substance: ONDANSETRON HYDROCHLORIDE
     Indication: NAUSEA
     Dosage: 8 MG, Q12H
     Route: 048
  9. ZOFRAN [Concomitant]
     Active Substance: ONDANSETRON HYDROCHLORIDE
     Indication: VOMITING
  10. SOLIRIS [Suspect]
     Active Substance: ECULIZUMAB
     Indication: PAROXYSMAL NOCTURNAL HAEMOGLOBINURIA
     Dosage: 900 MG, Q2W
     Route: 042
     Dates: start: 20080215
  11. NEORAL [Concomitant]
     Active Substance: CYCLOSPORINE
     Dosage: 125 MG, QD
     Route: 048
  12. FOLIC ACID. [Concomitant]
     Active Substance: FOLIC ACID
     Indication: MIGRAINE
  13. IMITREX [Concomitant]
     Active Substance: SUMATRIPTAN\SUMATRIPTAN SUCCINATE
     Dosage: 6 MG, Q2HRS PRN
     Route: 058
  14. FISH OIL [Concomitant]
     Active Substance: FISH OIL
     Indication: PRODUCT USED FOR UNKNOWN INDICATION
     Route: 065
  15. CHOLECALCIFEROL [Concomitant]
     Active Substance: CHOLECALCIFEROL
     Indication: VITAMIN D DEFICIENCY
     Dosage: 1000 UNITS, QD
     Route: 048

REACTIONS (28)
  - Unevaluable event [Unknown]
  - Blood thyroid stimulating hormone increased [Unknown]
  - Transfusion [Not Recovered/Not Resolved]
  - Pain [Recovered/Resolved]
  - Somnolence [Unknown]
  - Blood lactate dehydrogenase increased [Not Recovered/Not Resolved]
  - Headache [Not Recovered/Not Resolved]
  - Vitamin D decreased [Recovering/Resolving]
  - Haemoglobin decreased [Unknown]
  - Gallbladder operation [Unknown]
  - Hepatic enzyme increased [Not Recovered/Not Resolved]
  - Reticulocyte count increased [Not Recovered/Not Resolved]
  - Mass [Recovered/Resolved]
  - Adverse drug reaction [Not Recovered/Not Resolved]
  - Cytopenia [Not Recovered/Not Resolved]
  - Hepatic lesion [Unknown]
  - Fatigue [Not Recovered/Not Resolved]
  - Hypoaesthesia [Recovered/Resolved]
  - Full blood count decreased [Unknown]
  - Blood bilirubin increased [Not Recovered/Not Resolved]
  - Haemolysis [Not Recovered/Not Resolved]
  - Haematuria [Not Recovered/Not Resolved]
  - Swelling [Recovered/Resolved]
  - Iron overload [Not Recovered/Not Resolved]
  - Menorrhagia [Recovering/Resolving]
  - Unevaluable event [Not Recovered/Not Resolved]
  - Asthenia [Not Recovered/Not Resolved]
  - Migraine [Not Recovered/Not Resolved]

NARRATIVE: CASE EVENT DATE: 20140117
